FAERS Safety Report 18755378 (Version 1)
Quarter: 2021Q1

REPORT INFORMATION
  Report Type: Spontaneous
  Country: US (occurrence: US)
  Receive Date: 20210115
  Receipt Date: 20210115
  Transmission Date: 20210419
  Serious: No
  Sender: FDA-Public Use
  Company Number: None

PATIENT
  Age: 76 Year
  Sex: Female
  Weight: 61.56 kg

DRUGS (13)
  1. EXEMESTANE. [Suspect]
     Active Substance: EXEMESTANE
     Indication: BREAST CANCER FEMALE
     Route: 048
     Dates: start: 20200921
  2. GARLIC OIL [Concomitant]
     Active Substance: GARLIC OIL
  3. VITAMIN D3 [Concomitant]
     Active Substance: CHOLECALCIFEROL
  4. AMLODIPINE [Concomitant]
     Active Substance: AMLODIPINE BESYLATE
  5. ASPIRIN. [Concomitant]
     Active Substance: ASPIRIN
  6. ATENOLOL. [Concomitant]
     Active Substance: ATENOLOL
  7. CALCIUM [Concomitant]
     Active Substance: CALCIUM
  8. EXEMESTANE. [Concomitant]
     Active Substance: EXEMESTANE
  9. MULTIVITAMIN [Concomitant]
     Active Substance: VITAMINS
  10. CBD OIL [Concomitant]
     Active Substance: CANNABIDIOL\HERBALS
  11. CITALOPRAM [Concomitant]
     Active Substance: CITALOPRAM HYDROBROMIDE
  12. LOPERAMIDE [Concomitant]
     Active Substance: LOPERAMIDE
  13. LOVASTATIN. [Concomitant]
     Active Substance: LOVASTATIN

REACTIONS (3)
  - Depression [None]
  - Dizziness [None]
  - Memory impairment [None]

NARRATIVE: CASE EVENT DATE: 20210115
